FAERS Safety Report 5372302-6 (Version None)
Quarter: 2007Q2

REPORT INFORMATION
  Report Type: 
  Country: None (occurrence: None)
  Receive Date: 20070627
  Receipt Date: 20070611
  Transmission Date: 20071010
  Serious: Yes (Death, Hospitalization)
  Sender: FDA-Public Use
  Company Number: ES-ROCHE-501736

PATIENT
  Age: 82 Year
  Sex: Male
  Weight: 58 kg

DRUGS (10)
  1. CAPECITABINE [Suspect]
     Dosage: GIVEN ON DAYS 1 - 14 EVERY THREE WEEKS.
     Route: 048
     Dates: start: 20070430, end: 20070608
  2. BEVACIZUMAB [Suspect]
     Dosage: GIVEN ON DAY 1 EVERY THREE WEEKS.
     Route: 042
     Dates: start: 20070430, end: 20070608
  3. NOLOTIL [Concomitant]
     Dates: start: 20070410
  4. PRIMPERAN INJ [Concomitant]
     Dates: start: 20070410
  5. FORTECORTIN [Concomitant]
     Dates: start: 20070410
  6. ALDACTONE [Concomitant]
     Dates: start: 20070410
  7. OMEPRAZOLE [Concomitant]
     Dates: start: 20070410
  8. ORFIDAL [Concomitant]
     Dates: start: 20070410
  9. ADOLONTA [Concomitant]
     Dates: start: 20070417
  10. FERRO SANOL [Concomitant]
     Dates: start: 20070417

REACTIONS (1)
  - PNEUMONIA [None]
